FAERS Safety Report 14608325 (Version 1)
Quarter: 2018Q1

REPORT INFORMATION
  Report Type: Spontaneous
  Country: DE (occurrence: DE)
  Receive Date: 20180307
  Receipt Date: 20180307
  Transmission Date: 20180509
  Serious: Yes (Other)
  Sender: FDA-Public Use
  Company Number: DE-TEVA-2018-DE-862959

PATIENT
  Sex: Male
  Weight: 68.8 kg

DRUGS (4)
  1. ONCOFOLIC [Concomitant]
     Active Substance: FOLATE SODIUM
     Indication: ADENOCARCINOMA GASTRIC
     Dosage: LAST ADMINISTRATION BEFORE ONSET: 28-NOV-2016
     Route: 042
     Dates: start: 20161031, end: 20161128
  2. DOCETAXEL. [Suspect]
     Active Substance: DOCETAXEL
     Indication: ADENOCARCINOMA GASTRIC
     Dosage: LAST ADMINISTRATION BEFORE ONSET: 28-NOV-2016
     Route: 042
     Dates: start: 20161031, end: 20161128
  3. OXALIPLATIN. [Concomitant]
     Active Substance: OXALIPLATIN
     Indication: ADENOCARCINOMA GASTRIC
     Dosage: LAST ADMINISTRATION BEFORE ONSET: 28-NOV-2016
     Route: 042
     Dates: start: 20161031, end: 20161128
  4. 5-FU MEDAC [Suspect]
     Active Substance: FLUOROURACIL
     Indication: ADENOCARCINOMA GASTRIC
     Dosage: LAST ADMINISTRATION BEFORE ONSET: 28-NOV-2016
     Route: 042
     Dates: start: 20161031, end: 20161128

REACTIONS (1)
  - White blood cell count decreased [Recovered/Resolved]

NARRATIVE: CASE EVENT DATE: 20161205
